FAERS Safety Report 16834782 (Version 2)
Quarter: 2019Q4

REPORT INFORMATION
  Report Type: Spontaneous
  Country: FR (occurrence: FR)
  Receive Date: 20190920
  Receipt Date: 20191002
  Transmission Date: 20200122
  Serious: Yes (Hospitalization)
  Sender: FDA-Public Use
  Company Number: FR-JNJFOC-20190923264

PATIENT
  Age: 46 Year
  Sex: Male
  Weight: 145 kg

DRUGS (3)
  1. TRANXENE [Concomitant]
     Active Substance: CLORAZEPATE DIPOTASSIUM
     Indication: SCHIZOPHRENIA
     Dosage: VARIABLE
     Route: 048
     Dates: start: 20170811, end: 20180224
  2. DEPAKOTE [Concomitant]
     Active Substance: DIVALPROEX SODIUM
     Indication: SCHIZOPHRENIA
     Route: 048
     Dates: start: 20170811
  3. TREVICTA [Suspect]
     Active Substance: PALIPERIDONE PALMITATE
     Indication: SCHIZOPHRENIA
     Dosage: TREVICTA 525 MG,
     Route: 030
     Dates: start: 20180126, end: 20180422

REACTIONS (2)
  - Drug ineffective [Unknown]
  - Delirium [Recovered/Resolved]

NARRATIVE: CASE EVENT DATE: 201802
